FAERS Safety Report 5814490-0 (Version None)
Quarter: 2008Q3

REPORT INFORMATION
  Report Type: 
  Country: None (occurrence: None)
  Receive Date: 20080718
  Receipt Date: 20080718
  Transmission Date: 20090109
  Serious: Yes (Hospitalization)
  Sender: FDA-Public Use
  Company Number: None

PATIENT
  Age: 51 Year
  Sex: Female

DRUGS (3)
  1. HEPARIN [Suspect]
     Indication: VASCULAR OPERATION
     Dosage: VARIES BOLUSING IV
     Route: 042
     Dates: start: 20080702, end: 20080707
  2. HEPARIN [Suspect]
     Indication: VASCULAR OPERATION
     Dosage: VARIES BOLUSING IV
     Route: 042
     Dates: start: 20080624
  3. HEPARIN [Suspect]
     Indication: VASCULAR OPERATION
     Dosage: TITRATE CI IV
     Route: 042
     Dates: start: 20080702, end: 20080707

REACTIONS (1)
  - PLATELET COUNT DECREASED [None]
